FAERS Safety Report 6321615-X (Version None)
Quarter: 2009Q3

REPORT INFORMATION
  Report Type: 
  Country: None (occurrence: None)
  Receive Date: 20090819
  Receipt Date: 20090812
  Transmission Date: 20100115
  Serious: Yes (Death)
  Sender: FDA-Public Use
  Company Number: CERZ-1000784

PATIENT
  Sex: Female

DRUGS (1)
  1. CEREZYME [Suspect]
     Indication: GAUCHER'S DISEASE

REACTIONS (4)
  - ATAXIA [None]
  - DISEASE PROGRESSION [None]
  - GRAFT VERSUS HOST DISEASE [None]
  - NYSTAGMUS [None]
